FAERS Safety Report 23050764 (Version 1)
Quarter: 2023Q4

REPORT INFORMATION
  Report Type: Spontaneous
  Country: CN (occurrence: CN)
  Receive Date: 20231010
  Receipt Date: 20231010
  Transmission Date: 20240110
  Serious: Yes (Hospitalization)
  Sender: FDA-Public Use
  Company Number: CN-ELI_LILLY_AND_COMPANY-CN202308016525

PATIENT
  Age: 65 Year
  Sex: Male
  Weight: 75 kg

DRUGS (3)
  1. HUMALOG MIX50/50 [Suspect]
     Active Substance: INSULIN LISPRO
     Indication: Diabetes mellitus
     Dosage: 5 U, BID
     Route: 058
     Dates: start: 202110
  2. HUMALOG MIX50/50 [Suspect]
     Active Substance: INSULIN LISPRO
     Dosage: 6 U, BID
     Route: 058
  3. HUMALOG MIX50/50 [Suspect]
     Active Substance: INSULIN LISPRO
     Dosage: 7 U, BID
     Route: 058

REACTIONS (10)
  - Renal disorder [Unknown]
  - COVID-19 [Unknown]
  - Weight decreased [Unknown]
  - Gait disturbance [Unknown]
  - Blood glucose increased [Unknown]
  - Nephrotic syndrome [Unknown]
  - Injection site mass [Unknown]
  - Injection site pain [Unknown]
  - Injection site induration [Unknown]
  - Blood glucose decreased [Unknown]

NARRATIVE: CASE EVENT DATE: 20220101
